FAERS Safety Report 12173290 (Version 4)
Quarter: 2016Q1

REPORT INFORMATION
  Report Type: Spontaneous
  Country: JP (occurrence: JP)
  Receive Date: 20160311
  Receipt Date: 20160330
  Transmission Date: 20160526
  Serious: Yes (Death)
  Sender: FDA-Public Use
  Company Number: JP-ABBVIE-16P-087-1579279-00

PATIENT
  Age: 64 Year
  Sex: Male

DRUGS (11)
  1. POPSCAINE 0.75% INJ, USED AT 0.375% [Suspect]
     Active Substance: LEVOBUPIVACAINE HYDROCHLORIDE
     Indication: ANALGESIC THERAPY
     Dosage: 10 OR 20 ML (20 OR 40 ML OF 0.375% SOLUTION) (1 OR 2 IN 1 DAY)
     Route: 065
     Dates: start: 20160303, end: 20160305
  2. DORMICUM [Concomitant]
     Active Substance: MIDAZOLAM\MIDAZOLAM HYDROCHLORIDE
     Indication: SURGERY
  3. ULTIVA [Concomitant]
     Active Substance: REMIFENTANIL HYDROCHLORIDE
     Indication: SURGERY
  4. ESLAX [Concomitant]
     Active Substance: ROCURONIUM BROMIDE
     Indication: ANAESTHESIA
     Route: 065
     Dates: start: 20160303, end: 20160303
  5. ESLAX [Concomitant]
     Active Substance: ROCURONIUM BROMIDE
     Indication: SURGERY
  6. FENTANYL CITRATE. [Concomitant]
     Active Substance: FENTANYL CITRATE
     Indication: ANALGESIC THERAPY
     Dosage: 10 - 20 MCG/HR
     Route: 041
     Dates: start: 20160303, end: 20160306
  7. PERDIPINE [Concomitant]
     Active Substance: NICARDIPINE HYDROCHLORIDE
     Indication: BLOOD PRESSURE MANAGEMENT
     Dosage: 1-5 MG/HR
     Route: 041
     Dates: start: 20160303, end: 20160304
  8. DORMICUM [Concomitant]
     Active Substance: MIDAZOLAM\MIDAZOLAM HYDROCHLORIDE
     Indication: ANAESTHESIA
     Route: 065
     Dates: start: 20160303, end: 20160303
  9. ULTIVA [Concomitant]
     Active Substance: REMIFENTANIL HYDROCHLORIDE
     Indication: ANAESTHESIA
     Route: 065
     Dates: start: 20160303, end: 20160303
  10. SEVOFRANE [Concomitant]
     Active Substance: SEVOFLURANE
     Indication: ANAESTHESIA
     Route: 065
     Dates: start: 20160303, end: 20160303
  11. SEVOFRANE [Concomitant]
     Active Substance: SEVOFLURANE
     Indication: SURGERY

REACTIONS (1)
  - Cardiac failure [Fatal]

NARRATIVE: CASE EVENT DATE: 20160305
